APPROVED DRUG PRODUCT: QUETIAPINE FUMARATE
Active Ingredient: QUETIAPINE FUMARATE
Strength: EQ 300MG BASE
Dosage Form/Route: TABLET, EXTENDED RELEASE;ORAL
Application: A215478 | Product #004 | TE Code: AB
Applicant: UNICHEM LABORATORIES LTD
Approved: Aug 15, 2022 | RLD: No | RS: No | Type: RX